FAERS Safety Report 22979594 (Version 2)
Quarter: 2024Q1

REPORT INFORMATION
  Report Type: Spontaneous
  Country: US (occurrence: US)
  Receive Date: 20230925
  Receipt Date: 20240228
  Transmission Date: 20240409
  Serious: Yes (Hospitalization, Other)
  Sender: FDA-Public Use
  Company Number: US-PFIZER INC-202300253923

PATIENT
  Age: 23 Year
  Sex: Female
  Weight: 57 kg

DRUGS (9)
  1. OXBRYTA [Suspect]
     Active Substance: VOXELOTOR
     Dosage: (300MG, 3 TABLETS, ONCE DAILY,)
     Route: 048
  2. OXBRYTA [Suspect]
     Active Substance: VOXELOTOR
     Dosage: 600 MG, DAILY
     Route: 048
  3. OXBRYTA [Suspect]
     Active Substance: VOXELOTOR
     Dosage: 300 MG TABLETS BY MOUTH TWICE DAILY
     Route: 048
     Dates: start: 20200313
  4. AMLODIPINE [Concomitant]
     Active Substance: AMLODIPINE BESYLATE
     Dosage: UNK
  5. GABAPENTIN [Concomitant]
     Active Substance: GABAPENTIN
     Dosage: UNK
  6. LACTULOSE [Concomitant]
     Active Substance: LACTULOSE
     Dosage: UNK
  7. CYMBALTA [Concomitant]
     Active Substance: DULOXETINE HYDROCHLORIDE
     Dosage: UNK
  8. LUNESTA [Concomitant]
     Active Substance: ESZOPICLONE
     Dosage: UNK
  9. ACETAMINOPHEN\CHLORZOXAZONE [Concomitant]
     Active Substance: ACETAMINOPHEN\CHLORZOXAZONE
     Dosage: UNK

REACTIONS (3)
  - Sickle cell anaemia with crisis [Unknown]
  - Headache [Unknown]
  - Off label use [Unknown]
